FAERS Safety Report 8172742-6 (Version None)
Quarter: 2012Q1

REPORT INFORMATION
  Report Type: 
  Country: None (occurrence: None)
  Receive Date: 20120229
  Receipt Date: 20120217
  Transmission Date: 20120608
  Serious: Yes (Death, Hospitalization)
  Sender: FDA-Public Use
  Company Number: JP-AMGEN-JPNCT2011050789

PATIENT
  Age: 36 Year
  Sex: Male
  Weight: 96 kg

DRUGS (7)
  1. PANITUMUMAB [Suspect]
     Indication: COLORECTAL CANCER
     Dosage: 6 MG/KG, Q2WK
     Route: 041
     Dates: start: 20101026, end: 20101026
  2. WARFARIN SODIUM [Suspect]
     Indication: THROMBOSIS IN DEVICE
     Dosage: UNK
     Route: 048
  3. LOBU [Concomitant]
     Dosage: UNK
     Route: 048
  4. KETOPROFEN [Concomitant]
     Dosage: UNK
     Route: 062
  5. LANSOPRAZOLE [Concomitant]
     Dosage: UNK
     Route: 048
  6. DEPAS [Concomitant]
     Dosage: UNK
     Route: 048
  7. WARFARIN SODIUM [Suspect]
     Route: 048
     Dates: start: 20070912, end: 20101106

REACTIONS (2)
  - COLORECTAL CANCER [None]
  - CEREBRAL HAEMORRHAGE [None]
